FAERS Safety Report 7683288-3 (Version None)
Quarter: 2011Q3

REPORT INFORMATION
  Report Type: 
  Country: None (occurrence: None)
  Receive Date: 20110815
  Receipt Date: 20110809
  Transmission Date: 20111222
  Serious: Yes (Hospitalization)
  Sender: FDA-Public Use
  Company Number: US-GLAXOSMITHKLINE-A0929689A

PATIENT
  Sex: Female

DRUGS (2)
  1. ADVAIR DISKUS 100/50 [Suspect]
     Indication: ASTHMA
     Route: 055
     Dates: start: 20050101, end: 20110525
  2. VENTOLIN HFA [Concomitant]

REACTIONS (5)
  - ASTHMA [None]
  - MALAISE [None]
  - PRODUCT QUALITY ISSUE [None]
  - DRUG INTOLERANCE [None]
  - BRONCHITIS [None]
